FAERS Safety Report 14457833 (Version 1)
Quarter: 2018Q1

REPORT INFORMATION
  Report Type: Spontaneous
  Country: JP (occurrence: JP)
  Receive Date: 20180130
  Receipt Date: 20180130
  Transmission Date: 20180509
  Serious: Yes (Hospitalization)
  Sender: FDA-Public Use
  Company Number: JP-JNJFOC-20171007739

PATIENT
  Age: 62 Year
  Sex: Female
  Weight: 58 kg

DRUGS (2)
  1. YONDELIS [Suspect]
     Active Substance: TRABECTEDIN
     Indication: LEIOMYOSARCOMA METASTATIC
     Dosage: 1.9 MG X 1/DAY, EVERY THREE WEEKS, A 24-HOUR INFUSION; CYCLE 1 AND 2
     Route: 042
     Dates: start: 20170220, end: 20170313
  2. MAGMITT [Concomitant]
     Active Substance: MAGNESIUM OXIDE
     Indication: CONSTIPATION
     Route: 048
     Dates: start: 20170228, end: 20170404

REACTIONS (7)
  - Rhabdomyolysis [Recovered/Resolved]
  - Neutrophil count decreased [Recovered/Resolved]
  - Oedema [Not Recovered/Not Resolved]
  - Malaise [Recovered/Resolved]
  - Stomatitis [Recovering/Resolving]
  - Hepatic function abnormal [Not Recovered/Not Resolved]
  - Febrile neutropenia [Recovered/Resolved]

NARRATIVE: CASE EVENT DATE: 20170221
